FAERS Safety Report 8397588-5 (Version None)
Quarter: 2012Q2

REPORT INFORMATION
  Report Type: 
  Country: None (occurrence: None)
  Receive Date: 20120529
  Receipt Date: 20120529
  Transmission Date: 20120825
  Serious: Yes (Death)
  Sender: FDA-Public Use
  Company Number: None

PATIENT
  Age: 21 Year
  Sex: Male
  Weight: 63.5036 kg

DRUGS (2)
  1. IBUPROFAN [Concomitant]
  2. AZITHROMYCIN [Suspect]
     Indication: PHARYNGITIS STREPTOCOCCAL
     Dosage: 1 PILL DAILY PO
     Route: 048
     Dates: start: 20120316, end: 20120317

REACTIONS (2)
  - CONFUSIONAL STATE [None]
  - CHILLS [None]
